FAERS Safety Report 15354305 (Version 2)
Quarter: 2018Q4

REPORT INFORMATION
  Report Type: Report from Study
  Country: IN (occurrence: IN)
  Receive Date: 20180906
  Receipt Date: 20181124
  Transmission Date: 20190204
  Serious: Yes (Death, Other)
  Sender: FDA-Public Use
  Company Number: PHHY2017IN100066

PATIENT
  Age: 41 Year
  Sex: Male
  Weight: 57 kg

DRUGS (2)
  1. GLIVEC [Suspect]
     Active Substance: IMATINIB MESYLATE
     Dosage: 400 MG, QD
     Route: 048
     Dates: start: 20160721
  2. GLIVEC [Suspect]
     Active Substance: IMATINIB MESYLATE
     Indication: CHRONIC MYELOID LEUKAEMIA
     Dosage: 400 MG, QD
     Route: 048
     Dates: start: 20150223

REACTIONS (4)
  - Blast crisis in myelogenous leukaemia [Fatal]
  - Arthralgia [Recovering/Resolving]
  - Thrombocytopenia [Unknown]
  - Chronic myeloid leukaemia [Unknown]

NARRATIVE: CASE EVENT DATE: 20160622
